FAERS Safety Report 20085644 (Version 1)
Quarter: 2021Q4

REPORT INFORMATION
  Report Type: Spontaneous
  Country: US (occurrence: None)
  Receive Date: 20211117
  Receipt Date: 20211117
  Transmission Date: 20220303
  Serious: Yes (Hospitalization)
  Sender: FDA-Public Use
  Company Number: None

PATIENT
  Age: 64 Year
  Sex: Male

DRUGS (4)
  1. REMICADE [Suspect]
     Active Substance: INFLIXIMAB
     Dosage: OTHER FREQUENCY : Q 8 WEEK;?
     Route: 041
     Dates: start: 20211117, end: 20211117
  2. TYLENOL [Concomitant]
     Active Substance: ACETAMINOPHEN
     Dates: start: 20211117, end: 20211117
  3. CLARITIN [Concomitant]
     Active Substance: LORATADINE
     Dates: start: 20211117, end: 20211117
  4. SODIUM CHLORIDE [Concomitant]
     Active Substance: SODIUM CHLORIDE
     Dates: start: 20211117, end: 20211117

REACTIONS (5)
  - Hypersensitivity [None]
  - Chest pain [None]
  - Nausea [None]
  - Rash [None]
  - Infusion site rash [None]

NARRATIVE: CASE EVENT DATE: 20211117
